FAERS Safety Report 7735537-0 (Version None)
Quarter: 2011Q3

REPORT INFORMATION
  Report Type: 
  Country: None (occurrence: None)
  Receive Date: 20110907
  Receipt Date: 20110902
  Transmission Date: 20111222
  Serious: Yes (Hospitalization, Other)
  Sender: FDA-Public Use
  Company Number: GB-SANOFI-AVENTIS-2011SA046843

PATIENT
  Sex: Male

DRUGS (4)
  1. SOLOSTAR [Suspect]
     Dates: start: 20090101
  2. APIDRA SOLOSTAR [Suspect]
     Dosage: DOSE:70 UNIT(S)
     Route: 065
     Dates: start: 20090101, end: 20110718
  3. SOLOSTAR [Suspect]
     Dates: start: 20090101
  4. LANTUS [Suspect]
     Dosage: DOSE:70 UNIT(S)
     Route: 065
     Dates: start: 20090101

REACTIONS (1)
  - WRONG DRUG ADMINISTERED [None]
